FAERS Safety Report 20910722 (Version 1)
Quarter: 2022Q2

REPORT INFORMATION
  Report Type: Report from Study
  Country: US (occurrence: US)
  Receive Date: 20220603
  Receipt Date: 20220603
  Transmission Date: 20220720
  Serious: Yes (Hospitalization, Other)
  Sender: FDA-Public Use
  Company Number: US-MYLANLABS-2022M1041656

PATIENT
  Age: 55 Year
  Sex: Female
  Weight: 136.1 kg

DRUGS (19)
  1. PROPRANOLOL [Suspect]
     Active Substance: PROPRANOLOL HYDROCHLORIDE
     Indication: Product used for unknown indication
     Dosage: UNK
     Dates: end: 202205
  2. KORLYM [Suspect]
     Active Substance: MIFEPRISTONE
     Indication: Pituitary-dependent Cushing^s syndrome
     Dosage: 300 MILLIGRAM, QD
     Route: 048
     Dates: start: 20211106
  3. KORLYM [Suspect]
     Active Substance: MIFEPRISTONE
     Dosage: 600 MILLIGRAM, QD
     Route: 048
     Dates: start: 20211124, end: 20220118
  4. KORLYM [Suspect]
     Active Substance: MIFEPRISTONE
     Dosage: 900 MILLIGRAM, QD
     Route: 048
     Dates: start: 20220119, end: 20220406
  5. KORLYM [Suspect]
     Active Substance: MIFEPRISTONE
     Dosage: 1200 MILLIGRAM
     Route: 048
     Dates: start: 20220407, end: 202205
  6. KORLYM [Suspect]
     Active Substance: MIFEPRISTONE
     Dosage: 900 MILLIGRAM, QD
     Route: 048
     Dates: start: 202205
  7. DICLOFENAC [Suspect]
     Active Substance: DICLOFENAC
     Indication: Product used for unknown indication
     Dosage: UNK
     Dates: start: 2022, end: 202205
  8. COVID-19 VACCINE NOS [Suspect]
     Active Substance: COVID-19 VACCINE NOS
     Indication: Product used for unknown indication
     Dosage: UNK
     Route: 065
     Dates: start: 20211229, end: 20211229
  9. METFORMIN [Suspect]
     Active Substance: METFORMIN HYDROCHLORIDE
     Indication: Product used for unknown indication
     Dosage: UNK
     Dates: start: 20220311, end: 20220312
  10. TEGRETOL [Suspect]
     Active Substance: CARBAMAZEPINE
     Indication: Product used for unknown indication
     Dosage: UNK
  11. ROSUVASTATIN [Concomitant]
     Active Substance: ROSUVASTATIN
     Dosage: UNK
  12. FARXIGA [Concomitant]
     Active Substance: DAPAGLIFLOZIN PROPANEDIOL
     Dosage: UNK
  13. ASPIRIN [Concomitant]
     Active Substance: ASPIRIN
     Dosage: UNK
  14. ATENOLOL [Concomitant]
     Active Substance: ATENOLOL
     Dosage: UNK
  15. BROMOCRIPTINE [Concomitant]
     Active Substance: BROMOCRIPTINE
     Dosage: UNK
  16. OMEGA 3 [Concomitant]
     Active Substance: CAPSAICIN
     Dosage: UNK
  17. PAROXETINE [Concomitant]
     Active Substance: PAROXETINE
     Dosage: UNK
  18. VITAMIN D3 [Concomitant]
     Active Substance: CHOLECALCIFEROL
     Dosage: UNK
  19. MELOXICAM [Concomitant]
     Active Substance: MELOXICAM
     Dosage: UNK

REACTIONS (29)
  - Pallor [Unknown]
  - Blood pressure increased [Unknown]
  - Seizure [Unknown]
  - Arteriosclerosis coronary artery [Unknown]
  - Oxygen saturation decreased [Unknown]
  - Chest pain [Unknown]
  - Hyperhidrosis [Unknown]
  - Balance disorder [Not Recovered/Not Resolved]
  - Tremor [Recovered/Resolved]
  - Sleep apnoea syndrome [Unknown]
  - Abdominal distension [Recovering/Resolving]
  - Pharyngitis streptococcal [Unknown]
  - Tongue discolouration [Unknown]
  - Contusion [Unknown]
  - Scratch [Unknown]
  - Joint injury [Unknown]
  - Blood potassium decreased [Unknown]
  - Muscle spasms [Unknown]
  - Malaise [Not Recovered/Not Resolved]
  - Insomnia [Unknown]
  - Dyspnoea [Not Recovered/Not Resolved]
  - Nausea [Recovering/Resolving]
  - Bone pain [Recovering/Resolving]
  - Pyrexia [Unknown]
  - Arthralgia [Unknown]
  - Dizziness [Not Recovered/Not Resolved]
  - Somnolence [Not Recovered/Not Resolved]
  - Taste disorder [Unknown]
  - Cough [Unknown]

NARRATIVE: CASE EVENT DATE: 20211201
